FAERS Safety Report 9914330 (Version 1)
Quarter: 2014Q1

REPORT INFORMATION
  Report Type: Spontaneous
  Country: US (occurrence: None)
  Receive Date: 20140219
  Receipt Date: 20140219
  Transmission Date: 20141002
  Serious: Yes (Other)
  Sender: FDA-Public Use
  Company Number: None

PATIENT
  Age: 38 Year
  Sex: Female

DRUGS (1)
  1. HYDROCORTISONE [Suspect]
     Indication: ADDISON^S DISEASE
     Dosage: 6 PILLS A DAY  THREE TIMES DAILY
     Route: 048
     Dates: start: 20140101, end: 20140215

REACTIONS (3)
  - Malaise [None]
  - Product quality issue [None]
  - Feeling abnormal [None]
